FAERS Safety Report 5935181-1 (Version None)
Quarter: 2008Q4

REPORT INFORMATION
  Report Type: 
  Country: None (occurrence: None)
  Receive Date: 20081028
  Receipt Date: 20081015
  Transmission Date: 20090506
  Serious: No
  Sender: FDA-Public Use
  Company Number: US024883

PATIENT
  Age: 42 Year
  Sex: Female
  Weight: 77.1115 kg

DRUGS (5)
  1. FENTORA [Suspect]
     Indication: HEADACHE
     Dosage: 400 UG QID PRN BUCCAL
     Route: 002
     Dates: start: 20080801, end: 20080901
  2. NORCO [Concomitant]
  3. IMIPRAMINE [Concomitant]
  4. FLEXERIL [Concomitant]
  5. ATIVAN [Concomitant]

REACTIONS (3)
  - DRUG PRESCRIBING ERROR [None]
  - MEDICATION ERROR [None]
  - STOMATITIS [None]
